FAERS Safety Report 4471933-5 (Version None)
Quarter: 2004Q4

REPORT INFORMATION
  Report Type: 
  Country: None (occurrence: None)
  Receive Date: 20041007
  Receipt Date: 20041004
  Transmission Date: 20050328
  Serious: Yes (Death)
  Sender: FDA-Public Use
  Company Number: MY-2004-032480

PATIENT
  Age: 54 Year
  Sex: Male

DRUGS (2)
  1. MAGNEVIST [Suspect]
     Indication: ANGIOGRAM
     Dosage: 20 ML, 1 DOSE, INTRAVENOUS
     Route: 042
     Dates: start: 20040921, end: 20040921
  2. CARDIAC THERAPY [Concomitant]

REACTIONS (1)
  - RENAL FAILURE CHRONIC [None]
